FAERS Safety Report 17477673 (Version 1)
Quarter: 2020Q1

REPORT INFORMATION
  Report Type: Report from Study
  Country: TH (occurrence: TH)
  Receive Date: 20200228
  Receipt Date: 20200228
  Transmission Date: 20200409
  Serious: Yes (Death, Hospitalization)
  Sender: FDA-Public Use
  Company Number: NVSC2019TH043236

PATIENT
  Age: 56 Year
  Sex: Female

DRUGS (1)
  1. AFINITOR [Suspect]
     Active Substance: EVEROLIMUS
     Indication: BREAST CANCER
     Dosage: 10 MG, UNKNOWN
     Route: 048

REACTIONS (4)
  - Fatigue [Unknown]
  - Dyspnoea [Fatal]
  - Pulmonary oedema [Fatal]
  - Pneumonitis [Unknown]

NARRATIVE: CASE EVENT DATE: 20200112
